FAERS Safety Report 9913398 (Version 1)
Quarter: 2014Q1

REPORT INFORMATION
  Report Type: Report from Study
  Country: US (occurrence: US)
  Receive Date: 20140220
  Receipt Date: 20140220
  Transmission Date: 20141002
  Serious: Yes (Other)
  Sender: FDA-Public Use
  Company Number: US-ASTELLAS-2014US001742

PATIENT
  Sex: Female

DRUGS (28)
  1. ERLOTINIB TABLET [Suspect]
     Indication: LUNG ADENOCARCINOMA
     Dosage: UNK
     Route: 042
     Dates: start: 20110207
  2. ERLOTINIB TABLET [Suspect]
     Dosage: UNK
     Route: 048
     Dates: start: 20110307
  3. ERLOTINIB TABLET [Suspect]
     Dosage: UNK
     Route: 042
     Dates: start: 20110507
  4. AVASTIN /01555201/ [Suspect]
     Indication: LUNG ADENOCARCINOMA
     Dosage: 840 MG IN NACL 0.9% 100 ML (15 MG/KG, 1 IN  1 CYCLICAL)
     Route: 042
     Dates: start: 20110325
  5. AVASTIN /01555201/ [Suspect]
     Dosage: 850 MG IN NACL 0.9 % IN 100 ML (15 MG/KG), ONCE
     Route: 042
     Dates: start: 20110820
  6. AVASTIN /01555201/ [Suspect]
     Dosage: 820 MG IN NACL 0.9 % IN 100 ML (15 MG/KG), ONCE
     Route: 042
     Dates: start: 20110528
  7. TAXOL [Concomitant]
     Indication: LUNG ADENOCARCINOMA
     Dosage: UNK
     Route: 065
     Dates: start: 20101223, end: 20110214
  8. CISPLATIN [Concomitant]
     Indication: LUNG ADENOCARCINOMA
     Dosage: UNK
     Route: 065
     Dates: start: 20101223, end: 20110214
  9. PALONOSETRON [Concomitant]
     Indication: PRODUCT USED FOR UNKNOWN INDICATION
     Dosage: 0.25 MG, UNKNOWN/D
     Route: 042
     Dates: start: 20110730
  10. DEXAMETHASONE [Concomitant]
     Indication: PRODUCT USED FOR UNKNOWN INDICATION
     Dosage: 12 MG, UNKNOWN/D
     Route: 042
     Dates: start: 20110730
  11. DEXAMETHASONE [Concomitant]
     Dosage: 12 MG, UNKNOWN/D
     Route: 042
     Dates: start: 20110618
  12. DEXAMETHASONE [Concomitant]
     Dosage: 12 MG, UNKNOWN/D
     Route: 042
     Dates: start: 20110528
  13. BENADRYL                           /00000402/ [Concomitant]
     Indication: PRODUCT USED FOR UNKNOWN INDICATION
     Dosage: 25 MG, UNKNOWN/D
     Route: 042
     Dates: start: 20110820
  14. BENADRYL                           /00000402/ [Concomitant]
     Dosage: 25 MG, UNKNOWN/D
     Route: 042
     Dates: start: 20110618
  15. PEMETREXED                         /01493902/ [Concomitant]
     Indication: PRODUCT USED FOR UNKNOWN INDICATION
     Dosage: 820 MG IN NACL 0.9% IN 100 ML (500 MG/M2,1 IN 1 CYCLICAL)
     Route: 042
     Dates: start: 20110730
  16. PEMETREXED                         /01493902/ [Concomitant]
     Dosage: 825 MG IN NACL 0.9 % 100 ML (500 MG/M2)
     Route: 042
     Dates: start: 20110820
  17. PEMETREXED                         /01493902/ [Concomitant]
     Dosage: 815 MG, UNKNOWN/D
     Route: 042
     Dates: start: 20110618
  18. APREPITANT [Concomitant]
     Indication: NAUSEA
     Dosage: 80MG IN AM ON 3RD DAY, 125MG 1HR PRIOR TO CHEMO, 80MG IN AM ON 2ND DAY
     Route: 048
     Dates: start: 20110701
  19. APREPITANT [Concomitant]
     Dosage: UNKNOWN/D
     Route: 048
     Dates: start: 20110528
  20. CYANOCOBALAMIN [Concomitant]
     Indication: PRODUCT USED FOR UNKNOWN INDICATION
     Dosage: 1000 UG, UNKNOWN/D
     Route: 030
     Dates: start: 20110730
  21. CYANOCOBALAMIN [Concomitant]
     Dosage: 1000 MG, UID/QD
     Route: 058
     Dates: start: 20110709, end: 20110709
  22. CYANOCOBALAMIN [Concomitant]
     Dosage: 1000 MG, UNKNOWN/D
     Route: 030
     Dates: start: 20110820
  23. CYANOCOBALAMIN [Concomitant]
     Dosage: 1000 UG, UNKNOWN/D
     Route: 058
     Dates: start: 20110528
  24. FAMOTIDINE [Concomitant]
     Indication: PRODUCT USED FOR UNKNOWN INDICATION
     Dosage: 25 MG, UNKNOWN/D
     Route: 042
     Dates: start: 20110730
  25. FAMOTIDINE [Concomitant]
     Dosage: 20 MG, UNKNOWN/D
     Route: 042
     Dates: start: 20110820
  26. FAMOTIDINE [Concomitant]
     Dosage: 20 MG, UNKNOWN/D
     Route: 042
     Dates: start: 20110618
  27. FOLIC ACID [Concomitant]
     Indication: PRODUCT USED FOR UNKNOWN INDICATION
     Dosage: 1 MG, UNKNOWN/D
     Route: 042
  28. DARBEPOETIN ALFA [Concomitant]
     Indication: PRODUCT USED FOR UNKNOWN INDICATION
     Dosage: 500 UG, UNKNOWN/D
     Route: 058

REACTIONS (2)
  - Incorrect route of drug administration [Unknown]
  - Pancytopenia [Unknown]
